FAERS Safety Report 8985036 (Version 1)
Quarter: 2012Q4

REPORT INFORMATION
  Report Type: 
  Country: BR (occurrence: BR)
  Receive Date: 20121226
  Receipt Date: 20121226
  Transmission Date: 20130627
  Serious: Yes (Other)
  Sender: FDA-Public Use
  Company Number: PHHY2012BR118858

PATIENT
  Age: 54 None
  Sex: Male
  Weight: 90 kg

DRUGS (7)
  1. DIOVAN HCT [Suspect]
     Indication: HYPERTENSION
     Dosage: 1 DF (160 mg vals and 12.5 mg HCTZ), daily
     Route: 048
  2. AROTIN [Concomitant]
     Indication: DEPRESSION
     Dosage: 20 mg, at night
     Route: 048
  3. VITORIN [Concomitant]
     Indication: BLOOD CHOLESTEROL ABNORMAL
     Dosage: 1 DF, at night
     Route: 048
  4. CLOPIDOGREL BISULFATE [Concomitant]
     Indication: CARDIAC DISORDER
     Dosage: 75 mg, in the morning
     Route: 048
  5. SOLMAGIM CARIDIO [Concomitant]
     Indication: BLOOD VISCOSITY INCREASED
     Dosage: 100 mg, at night
     Route: 048
  6. RIVOTRIL [Concomitant]
     Indication: SLEEP DISORDER
     Dosage: 1 DF, at night
     Route: 048
  7. SINVASCOR [Concomitant]
     Indication: BLOOD CHOLESTEROL ABNORMAL
     Dosage: 1 DF, in the morning
     Route: 048

REACTIONS (4)
  - Infarction [Recovered/Resolved]
  - Vein disorder [Not Recovered/Not Resolved]
  - Pain in extremity [Recovered/Resolved]
  - Fatigue [Unknown]
